FAERS Safety Report 7327235-2 (Version None)
Quarter: 2011Q1

REPORT INFORMATION
  Report Type: 
  Country: None (occurrence: None)
  Receive Date: 20110302
  Receipt Date: 20110228
  Transmission Date: 20110831
  Serious: Yes (Other)
  Sender: FDA-Public Use
  Company Number: GB-ABBOTT-11P-167-0708181-00

PATIENT
  Sex: Female

DRUGS (2)
  1. HUMIRA [Suspect]
     Indication: PRODUCT USED FOR UNKNOWN INDICATION
     Dates: start: 20101223
  2. METHOTREXATE [Concomitant]
     Indication: PRODUCT USED FOR UNKNOWN INDICATION

REACTIONS (8)
  - OCULAR HYPERAEMIA [None]
  - HYPERTENSION [None]
  - ABNORMAL SENSATION IN EYE [None]
  - EXOPHTHALMOS [None]
  - MOBILITY DECREASED [None]
  - INJECTION SITE MACULE [None]
  - HEADACHE [None]
  - FLUSHING [None]
